FAERS Safety Report 16195710 (Version 1)
Quarter: 2019Q2

REPORT INFORMATION
  Report Type: Spontaneous
  Country: US (occurrence: US)
  Receive Date: 20190309
  Receipt Date: 20190309
  Transmission Date: 20190711
  Serious: Yes (Hospitalization)
  Sender: FDA-Public Use
  Company Number: None

PATIENT
  Age: 15 Year
  Sex: Female
  Weight: 46.45 kg

DRUGS (6)
  1. VINCRISTINE SULFATE. [Suspect]
     Active Substance: VINCRISTINE SULFATE
     Dates: end: 20160406
  2. METHOTREXATE. [Suspect]
     Active Substance: METHOTREXATE
     Dates: end: 20160413
  3. CYTARABINE. [Suspect]
     Active Substance: CYTARABINE
     Dates: end: 20160317
  4. ONCASPAR [Suspect]
     Active Substance: PEGASPARGASE
     Dosage: ?          OTHER DOSE:4050 UNITS;?
     Dates: end: 20160320
  5. PREDNISONE. [Suspect]
     Active Substance: PREDNISONE
     Dates: end: 20160414
  6. DAUNORUBICIN [Suspect]
     Active Substance: DAUNORUBICIN
     Dates: start: 20160406

REACTIONS (2)
  - Metastases to bone marrow [None]
  - Plasma cell myeloma [None]

NARRATIVE: CASE EVENT DATE: 20190227
